FAERS Safety Report 11933461 (Version 1)
Quarter: 2016Q1

REPORT INFORMATION
  Report Type: Spontaneous
  Country: US (occurrence: US)
  Receive Date: 20160121
  Receipt Date: 20160121
  Transmission Date: 20160526
  Serious: No
  Sender: FDA-Public Use
  Company Number: US-TEVA-558959USA

PATIENT
  Age: 63 Year
  Sex: Female

DRUGS (3)
  1. KLONOPIN [Concomitant]
     Active Substance: CLONAZEPAM
     Indication: INSOMNIA
  2. MIRTAZAPINE. [Suspect]
     Active Substance: MIRTAZAPINE
     Indication: INSOMNIA
     Dosage: 30 MILLIGRAM DAILY;
     Route: 048
     Dates: start: 20150109, end: 20150424
  3. AMITRIPTYLINE [Concomitant]
     Active Substance: AMITRIPTYLINE
     Indication: INSOMNIA

REACTIONS (7)
  - Nausea [Unknown]
  - Impaired work ability [Unknown]
  - Headache [Not Recovered/Not Resolved]
  - Agitation [Not Recovered/Not Resolved]
  - Insomnia [Not Recovered/Not Resolved]
  - Restlessness [Not Recovered/Not Resolved]
  - Dysgeusia [Unknown]

NARRATIVE: CASE EVENT DATE: 20150109
